FAERS Safety Report 18284484 (Version 1)
Quarter: 2020Q3

REPORT INFORMATION
  Report Type: Spontaneous
  Country: US (occurrence: US)
  Receive Date: 20200918
  Receipt Date: 20200918
  Transmission Date: 20201103
  Serious: Yes (Other)
  Sender: FDA-Public Use
  Company Number: US-BAUSCH-BL-2020-025979

PATIENT
  Sex: Female

DRUGS (1)
  1. APRISO [Suspect]
     Active Substance: MESALAMINE
     Indication: COLITIS ULCERATIVE
     Dosage: USUALLY TAKES 4 CAPSULES A DAY
     Route: 065

REACTIONS (3)
  - Haemorrhage [Unknown]
  - Therapy interrupted [Unknown]
  - Diarrhoea [Unknown]
